FAERS Safety Report 7553678-8 (Version None)
Quarter: 2011Q2

REPORT INFORMATION
  Report Type: 
  Country: None (occurrence: None)
  Receive Date: 20110617
  Receipt Date: 20110613
  Transmission Date: 20111010
  Serious: No
  Sender: FDA-Public Use
  Company Number: US-TEVA-286596USA

PATIENT
  Sex: Female
  Weight: 65.83 kg

DRUGS (2)
  1. COUMADIN [Concomitant]
     Indication: THROMBOSIS
  2. PLAN B ONE-STEP [Suspect]
     Indication: POST COITAL CONTRACEPTION
     Dosage: 1.5 MILLIGRAM;
     Route: 048
     Dates: start: 20110530, end: 20110530

REACTIONS (2)
  - MENORRHAGIA [None]
  - MENSTRUATION IRREGULAR [None]
